FAERS Safety Report 8078793-4 (Version None)
Quarter: 2012Q1

REPORT INFORMATION
  Report Type: 
  Country: None (occurrence: None)
  Receive Date: 20120125
  Receipt Date: 20120112
  Transmission Date: 20120608
  Serious: Yes (Other)
  Sender: FDA-Public Use
  Company Number: 1000027057

PATIENT
  Age: 35 Year
  Sex: Male

DRUGS (2)
  1. VIIBRYD [Suspect]
     Indication: DEPRESSION
     Dosage: 40 MG (40 MG, 1 IN 1 D), ORAL
     Route: 048
     Dates: start: 20111201, end: 20111201
  2. VIIBRYD [Suspect]
     Indication: DEPRESSION
     Dosage: 10;20 MG (10 MG, 1 IN 1 D), ORAL
     Route: 048
     Dates: start: 20111201, end: 20111201

REACTIONS (3)
  - SUICIDAL IDEATION [None]
  - DEPRESSION [None]
  - CONDITION AGGRAVATED [None]
